FAERS Safety Report 25803539 (Version 1)
Quarter: 2025Q3

REPORT INFORMATION
  Report Type: Spontaneous
  Country: US (occurrence: None)
  Receive Date: 20250915
  Receipt Date: 20250915
  Transmission Date: 20251020
  Serious: Yes (Death, Life-Threatening, Hospitalization)
  Sender: FDA-CTU
  Company Number: None

PATIENT
  Age: 79 Year
  Sex: Female
  Weight: 48.9 kg

DRUGS (10)
  1. CAPIVASERTIB [Suspect]
     Active Substance: CAPIVASERTIB
     Indication: Breast cancer
     Route: 048
     Dates: start: 20250820, end: 20250904
  2. GABAPENTIN [Concomitant]
     Active Substance: GABAPENTIN
     Dates: start: 20240901, end: 20250904
  3. LISINOPRIL [Concomitant]
     Active Substance: LISINOPRIL
     Dates: start: 20240301, end: 20250904
  4. LOMOTIL [Concomitant]
     Active Substance: ATROPINE SULFATE\DIPHENOXYLATE HYDROCHLORIDE
     Dates: start: 20250101, end: 20250904
  5. CIPRODEX [Concomitant]
     Active Substance: CIPROFLOXACIN HYDROCHLORIDE\DEXAMETHASONE
     Dates: start: 20250804, end: 20250811
  6. ALENDRONATE [Concomitant]
     Active Substance: ALENDRONATE SODIUM
     Dates: start: 20231001, end: 20250904
  7. CARVEDILOL [Concomitant]
     Active Substance: CARVEDILOL
     Dates: start: 20231101, end: 20250904
  8. FLUOXETINE [Concomitant]
     Active Substance: FLUOXETINE HYDROCHLORIDE
     Dates: start: 20240201, end: 20250904
  9. SIMVASTATIN [Concomitant]
     Active Substance: SIMVASTATIN
     Dates: start: 20240101, end: 20250904
  10. ALPELISIB [Concomitant]
     Active Substance: ALPELISIB
     Dates: start: 20250220, end: 20250802

REACTIONS (14)
  - Hypophagia [None]
  - Hypotension [None]
  - Diabetic ketoacidosis [None]
  - Metabolic acidosis [None]
  - Septic shock [None]
  - Encephalopathy [None]
  - Acute kidney injury [None]
  - Oliguria [None]
  - Anaemia [None]
  - Urinary tract infection [None]
  - Hypothermia [None]
  - Generalised oedema [None]
  - Pulmonary oedema [None]
  - General physical health deterioration [None]

NARRATIVE: CASE EVENT DATE: 20250904
